FAERS Safety Report 5987707-X (Version None)
Quarter: 2008Q4

REPORT INFORMATION
  Report Type: 
  Country: None (occurrence: None)
  Receive Date: 20081209
  Receipt Date: 20081203
  Transmission Date: 20090506
  Serious: Yes (Other)
  Sender: FDA-Public Use
  Company Number: NL-ROXANE LABORATORIES, INC.-2008-RO-00331RO

PATIENT
  Age: 57 Year
  Sex: Female

DRUGS (6)
  1. MYCOPHENOLATE MOFETIL [Suspect]
     Indication: IMMUNOSUPPRESSION
     Dates: start: 20020101
  2. MYCOPHENOLATE MOFETIL [Suspect]
     Dosage: 500MG
  3. PREDNISONE TAB [Suspect]
     Indication: IMMUNOSUPPRESSION
     Dates: start: 20010101
  4. FINGOLIMOD [Suspect]
     Indication: IMMUNOSUPPRESSION
     Dates: start: 20010101
  5. CYCLOSPORINE [Suspect]
     Indication: IMMUNOSUPPRESSION
     Dates: start: 20010101
  6. SIROLIMUS [Concomitant]
     Indication: IMMUNOSUPPRESSION

REACTIONS (2)
  - BREAST CANCER [None]
  - ENTEROCOLITIS [None]
